FAERS Safety Report 17815658 (Version 1)
Quarter: 2020Q2

REPORT INFORMATION
  Report Type: Spontaneous
  Country: US (occurrence: US)
  Receive Date: 20200522
  Receipt Date: 20200522
  Transmission Date: 20200714
  Serious: Yes (Death)
  Sender: FDA-Public Use
  Company Number: None

PATIENT
  Age: 59 Year
  Sex: Female
  Weight: 127 kg

DRUGS (1)
  1. REMDESIVIR. [Suspect]
     Active Substance: REMDESIVIR
     Indication: COVID-19
     Route: 040
     Dates: start: 20200514, end: 20200519

REACTIONS (7)
  - Haemoglobin decreased [None]
  - Blood lactic acid increased [None]
  - Hypotension [None]
  - Acidosis [None]
  - White blood cell count increased [None]
  - Cardio-respiratory arrest [None]
  - Acute kidney injury [None]

NARRATIVE: CASE EVENT DATE: 20200520
